FAERS Safety Report 6535894-7 (Version None)
Quarter: 2010Q1

REPORT INFORMATION
  Report Type: 
  Country: None (occurrence: None)
  Receive Date: 20100113
  Receipt Date: 20100106
  Transmission Date: 20100710
  Serious: Yes (Other)
  Sender: FDA-Public Use
  Company Number: GB-TEVA-220158ISR

PATIENT
  Age: 34 Year
  Sex: Female

DRUGS (2)
  1. DIAZEPAM [Suspect]
     Indication: AGITATION
     Route: 048
  2. ARIPIPRAZOLE [Suspect]
     Indication: PSYCHOTIC DISORDER
     Route: 048

REACTIONS (2)
  - ELECTROCARDIOGRAM QT PROLONGED [None]
  - TACHYCARDIA [None]
